FAERS Safety Report 14762805 (Version 2)
Quarter: 2018Q3

REPORT INFORMATION
  Report Type: Spontaneous
  Country: US (occurrence: US)
  Receive Date: 20180416
  Receipt Date: 20180725
  Transmission Date: 20181010
  Serious: No
  Sender: FDA-Public Use
  Company Number: US-PFIZER INC-2018152967

PATIENT
  Age: 49 Year
  Sex: Female

DRUGS (1)
  1. EUCRISA [Suspect]
     Active Substance: CRISABOROLE
     Indication: ECZEMA
     Dosage: UNK (TWICE LAST WEEK)

REACTIONS (2)
  - Insomnia [Unknown]
  - Application site pruritus [Unknown]

NARRATIVE: CASE EVENT DATE: 201804
